FAERS Safety Report 7639667-3 (Version None)
Quarter: 2011Q3

REPORT INFORMATION
  Report Type: 
  Country: None (occurrence: None)
  Receive Date: 20110727
  Receipt Date: 20101202
  Transmission Date: 20111222
  Serious: No
  Sender: FDA-Public Use
  Company Number: US-MYLANLABS-2010S1021512

PATIENT
  Age: 86 Year
  Sex: Female

DRUGS (3)
  1. MIRTAZAPINE [Suspect]
  2. TOPROL-XL [Suspect]
  3. DIGOXIN [Suspect]

REACTIONS (20)
  - PANIC ATTACK [None]
  - FALL [None]
  - CONSTIPATION [None]
  - BALANCE DISORDER [None]
  - HEART RATE IRREGULAR [None]
  - DROOLING [None]
  - DECUBITUS ULCER [None]
  - DEPRESSION [None]
  - HEAD INJURY [None]
  - DEHYDRATION [None]
  - HALLUCINATION [None]
  - FATIGUE [None]
  - SUICIDAL IDEATION [None]
  - IRRITABILITY [None]
  - INCONTINENCE [None]
  - INSOMNIA [None]
  - MENTAL STATUS CHANGES [None]
  - GAIT DISTURBANCE [None]
  - RESTLESSNESS [None]
  - CONTUSION [None]
